FAERS Safety Report 6014527-2 (Version None)
Quarter: 2008Q4

REPORT INFORMATION
  Report Type: 
  Country: None (occurrence: None)
  Receive Date: 20081219
  Receipt Date: 20080812
  Transmission Date: 20090506
  Serious: No
  Sender: FDA-Public Use
  Company Number: A0740910A

PATIENT
  Sex: Male

DRUGS (1)
  1. AVODART [Suspect]
     Route: 048
     Dates: end: 20080701

REACTIONS (2)
  - URINARY INCONTINENCE [None]
  - URINE OUTPUT INCREASED [None]
